FAERS Safety Report 8213174-1 (Version None)
Quarter: 2012Q1

REPORT INFORMATION
  Report Type: 
  Country: None (occurrence: None)
  Receive Date: 20120315
  Receipt Date: 20120309
  Transmission Date: 20120608
  Serious: Yes (Other)
  Sender: FDA-Public Use
  Company Number: US-TEVA-324368USA

PATIENT
  Sex: Female
  Weight: 63.56 kg

DRUGS (9)
  1. VICODIN [Concomitant]
     Indication: COMPLEX REGIONAL PAIN SYNDROME
  2. OXYCODONE HYDROCHLORIDE [Concomitant]
     Indication: COMPLEX REGIONAL PAIN SYNDROME
  3. MORPHINE [Concomitant]
     Indication: FIBROMYALGIA
  4. VICODIN [Concomitant]
     Indication: FIBROMYALGIA
  5. ACTIQ [Suspect]
     Indication: FIBROMYALGIA
     Dosage: 14-16 LOZENGES DAILY
     Route: 002
     Dates: start: 20020101, end: 20080101
  6. SLEEPING PILLS [Concomitant]
  7. OXYCODONE HYDROCHLORIDE [Concomitant]
     Indication: FIBROMYALGIA
  8. ACTIQ [Suspect]
     Indication: COMPLEX REGIONAL PAIN SYNDROME
     Dosage: 1 BOX/MONTH
     Route: 002
     Dates: start: 20020101, end: 20020101
  9. MORPHINE [Concomitant]
     Indication: COMPLEX REGIONAL PAIN SYNDROME

REACTIONS (10)
  - BONE GRAFT [None]
  - DENTAL IMPLANTATION [None]
  - TOOTH FRACTURE [None]
  - TOOTH DISORDER [None]
  - ORAL DISCOMFORT [None]
  - PAIN IN JAW [None]
  - DENTAL CARIES [None]
  - DRUG PRESCRIBING ERROR [None]
  - SINUS DISORDER [None]
  - BRUXISM [None]
